FAERS Safety Report 4436407-6 (Version None)
Quarter: 2004Q3

REPORT INFORMATION
  Report Type: 
  Country: None (occurrence: None)
  Receive Date: 20040830
  Receipt Date: 20040504
  Transmission Date: 20050211
  Serious: No
  Sender: FDA-Public Use
  Company Number: US-BRISTOL-MYERS SQUIBB COMPANY-12580882

PATIENT

DRUGS (1)
  1. ABILIFY [Suspect]
     Dosage: LOWERED TO 10 MG/DAY

REACTIONS (1)
  - DYSTONIA [None]
